FAERS Safety Report 9664874 (Version 1)
Quarter: 2013Q4

REPORT INFORMATION
  Report Type: Spontaneous
  Country: US (occurrence: US)
  Receive Date: 20131101
  Receipt Date: 20131101
  Transmission Date: 20140711
  Serious: Yes (Death)
  Sender: FDA-Public Use
  Company Number: US-GLAXOSMITHKLINE-A1047942A

PATIENT
  Age: 51 Year
  Sex: Female

DRUGS (6)
  1. TYKERB [Suspect]
     Indication: BREAST CANCER
     Dosage: 1250MG PER DAY
     Route: 048
     Dates: start: 20130807
  2. TRAZODONE [Concomitant]
  3. MIRTAZAPINE [Concomitant]
  4. VENLAFAXINE [Concomitant]
  5. GABAPENTIN [Concomitant]
  6. LOVENOX [Concomitant]

REACTIONS (1)
  - Breast cancer metastatic [Fatal]
